FAERS Safety Report 14447217 (Version 2)
Quarter: 2018Q1

REPORT INFORMATION
  Report Type: Spontaneous
  Country: US (occurrence: US)
  Receive Date: 20180126
  Receipt Date: 20180302
  Transmission Date: 20180509
  Serious: Yes (Hospitalization, Other)
  Sender: FDA-Public Use
  Company Number: US-TEVA-2018-US-852990

PATIENT
  Age: 75 Year
  Sex: Male

DRUGS (6)
  1. ROSUVASTATIN CALCIUM. [Concomitant]
     Active Substance: ROSUVASTATIN CALCIUM
     Route: 065
     Dates: start: 201707
  2. ROSUVASTATIN CALCIUM. [Concomitant]
     Active Substance: ROSUVASTATIN CALCIUM
     Route: 065
     Dates: start: 201707
  3. ROSUVASTATIN CALCIUM. [Concomitant]
     Active Substance: ROSUVASTATIN CALCIUM
     Route: 065
     Dates: start: 2015
  4. AMLODIPINE [Concomitant]
     Active Substance: AMLODIPINE BESYLATE
     Route: 065
  5. ACITRETIN. [Suspect]
     Active Substance: ACITRETIN
     Indication: PSORIASIS
     Route: 048
     Dates: start: 2015, end: 201801
  6. LOSARTAN. [Concomitant]
     Active Substance: LOSARTAN
     Route: 065

REACTIONS (24)
  - Paralysis [Unknown]
  - Psoriasis [Not Recovered/Not Resolved]
  - Knee arthroplasty [Recovered/Resolved]
  - Madarosis [Unknown]
  - Onychomalacia [Recovering/Resolving]
  - Vascular operation [Unknown]
  - Dry mouth [Unknown]
  - Skin exfoliation [Unknown]
  - Drug ineffective [Unknown]
  - Skin ulcer [Recovering/Resolving]
  - Nail disorder [Recovering/Resolving]
  - Skin abrasion [Unknown]
  - Alopecia [Unknown]
  - Onychoclasis [Recovering/Resolving]
  - Fall [Not Recovered/Not Resolved]
  - Venous haemorrhage [Recovering/Resolving]
  - Hyperkeratosis [Unknown]
  - Condition aggravated [Unknown]
  - Feeling cold [Recovering/Resolving]
  - Anxiety [Unknown]
  - Temperature intolerance [Unknown]
  - Hair colour changes [Recovered/Resolved]
  - Urticaria [Unknown]
  - Tremor [Not Recovered/Not Resolved]

NARRATIVE: CASE EVENT DATE: 201711
